FAERS Safety Report 4425109-8 (Version None)
Quarter: 2004Q3

REPORT INFORMATION
  Report Type: 
  Country: None (occurrence: None)
  Receive Date: 20040813
  Receipt Date: 20040804
  Transmission Date: 20050211
  Serious: Yes (Other)
  Sender: FDA-Public Use
  Company Number: DE-JNJFOC-20040305390

PATIENT
  Sex: Female
  Weight: 44 kg

DRUGS (4)
  1. TOPAMAX [Suspect]
     Indication: EPILEPSY
     Route: 049
  2. CONVULEX [Concomitant]
     Route: 049
  3. BERLTHYROX [Concomitant]
     Route: 049
  4. HCT [Concomitant]
     Route: 049

REACTIONS (2)
  - MYELODYSPLASTIC SYNDROME [None]
  - PANCYTOPENIA [None]
